FAERS Safety Report 6926026-1 (Version None)
Quarter: 2010Q3

REPORT INFORMATION
  Report Type: 
  Country: None (occurrence: None)
  Receive Date: 20100816
  Receipt Date: 20100805
  Transmission Date: 20110219
  Serious: Yes (Life-Threatening, Hospitalization)
  Sender: FDA-Public Use
  Company Number: US-BAXTER-2010BH020975

PATIENT
  Age: 51 Year
  Sex: Male
  Weight: 71 kg

DRUGS (7)
  1. CYCLOPHOSPHAMIDE [Suspect]
     Indication: MANTLE CELL LYMPHOMA
     Route: 048
     Dates: start: 20100521
  2. RITUXIMAB [Suspect]
     Indication: MANTLE CELL LYMPHOMA
     Route: 065
     Dates: start: 20100521, end: 20100618
  3. VELCADE [Suspect]
     Indication: MANTLE CELL LYMPHOMA
     Route: 065
     Dates: start: 20100521, end: 20100628
  4. DEXAMETHASONE [Suspect]
     Indication: MANTLE CELL LYMPHOMA
     Route: 048
     Dates: start: 20100521
  5. ACYCLOVIR [Concomitant]
     Indication: PRODUCT USED FOR UNKNOWN INDICATION
     Route: 065
  6. LEVOTHYROXINE [Concomitant]
     Indication: PRODUCT USED FOR UNKNOWN INDICATION
     Route: 065
  7. LORAZEPAM [Concomitant]
     Indication: PRODUCT USED FOR UNKNOWN INDICATION
     Route: 065

REACTIONS (3)
  - GASTROENTERITIS CRYPTOSPORIDIAL [None]
  - RASH [None]
  - WEST NILE VIRAL INFECTION [None]
